FAERS Safety Report 8259634-9 (Version None)
Quarter: 2012Q2

REPORT INFORMATION
  Report Type: 
  Country: None (occurrence: None)
  Receive Date: 20120404
  Receipt Date: 20120402
  Transmission Date: 20120825
  Serious: Yes (Other)
  Sender: FDA-Public Use
  Company Number: PHEH2012US003812

PATIENT
  Sex: Female
  Weight: 102.4 kg

DRUGS (5)
  1. VALTREX [Concomitant]
     Dosage: 500 MG, UNK
  2. VITAMIN D [Concomitant]
     Dosage: UNK UKN, QD
     Route: 048
  3. GILENYA [Suspect]
     Indication: MULTIPLE SCLEROSIS
     Dosage: 0.5 MG, DAILY
     Route: 048
     Dates: start: 20110823
  4. ZYRTEC [Concomitant]
     Dosage: 10 MG, UNK
     Route: 048
  5. MULTI-VITAMIN [Concomitant]
     Dosage: UNK UKN, QD
     Route: 048

REACTIONS (2)
  - DYSPEPSIA [None]
  - CHEST PAIN [None]
